FAERS Safety Report 10558246 (Version 2)
Quarter: 2017Q4

REPORT INFORMATION
  Report Type: Report from Study
  Country: US (occurrence: US)
  Receive Date: 20141031
  Receipt Date: 20171130
  Transmission Date: 20180320
  Serious: Yes (Death)
  Sender: FDA-Public Use
  Company Number: US-ASTELLAS-2014US016368

PATIENT
  Age: 55 Year
  Sex: Female

DRUGS (4)
  1. AVASTIN [Suspect]
     Active Substance: BEVACIZUMAB
     Indication: GALLBLADDER CANCER
  2. ERLOTINIB [Suspect]
     Active Substance: ERLOTINIB
     Indication: BILE DUCT CANCER
     Route: 048
  3. AVASTIN [Suspect]
     Active Substance: BEVACIZUMAB
     Indication: BILE DUCT CANCER
     Dosage: UNK UNK, UNKNOWN FREQ.
     Route: 065
  4. ERLOTINIB [Suspect]
     Active Substance: ERLOTINIB
     Indication: GALLBLADDER CANCER

REACTIONS (3)
  - Off label use [Fatal]
  - Intentional product use issue [Fatal]
  - Death [Fatal]

NARRATIVE: CASE EVENT DATE: 20141028
